FAERS Safety Report 7046698-3 (Version None)
Quarter: 2010Q4

REPORT INFORMATION
  Report Type: 
  Country: None (occurrence: None)
  Receive Date: 20101015
  Receipt Date: 20101013
  Transmission Date: 20110411
  Serious: Yes (Hospitalization)
  Sender: FDA-Public Use
  Company Number: TR-SP-2010-05723

PATIENT
  Age: 40 Year
  Sex: Male

DRUGS (1)
  1. BCG  THERAPEUTICS [Suspect]
     Indication: BLADDER CANCER
     Dosage: NOT REPORTED
     Route: 043

REACTIONS (9)
  - ABDOMINAL PAIN [None]
  - DECREASED APPETITE [None]
  - HEPATITIS [None]
  - HEPATOSPLENOMEGALY [None]
  - HYPERSENSITIVITY [None]
  - JAUNDICE [None]
  - LIVER FUNCTION TEST ABNORMAL [None]
  - PYREXIA [None]
  - RASH [None]
